FAERS Safety Report 5675701-8 (Version None)
Quarter: 2008Q1

REPORT INFORMATION
  Report Type: 
  Country: None (occurrence: None)
  Receive Date: 20080321
  Receipt Date: 20080310
  Transmission Date: 20080703
  Serious: Yes (Other)
  Sender: FDA-Public Use
  Company Number: PHEH2008US02652

PATIENT
  Sex: Female

DRUGS (2)
  1. EXELON [Suspect]
     Indication: DEMENTIA ALZHEIMER'S TYPE
     Dosage: 9.5 MG, UNK
     Route: 062
     Dates: start: 20080201, end: 20080101
  2. NAMENDA [Concomitant]

REACTIONS (1)
  - DYSKINESIA [None]
